FAERS Safety Report 6811981-0 (Version None)
Quarter: 2010Q2

REPORT INFORMATION
  Report Type: 
  Country: None (occurrence: None)
  Receive Date: 20100628
  Receipt Date: 20100623
  Transmission Date: 20101027
  Serious: Yes (Life-Threatening)
  Sender: FDA-Public Use
  Company Number: 2010SP021037

PATIENT
  Age: 70 Year
  Sex: Male

DRUGS (11)
  1. MIRTAZAPINE [Suspect]
     Indication: DEPRESSION
     Dosage: 15 MG; QD; PO, 30 MG; QD; PO, 45 MG; QD; PO
     Route: 048
     Dates: start: 20100215, end: 20100221
  2. MIRTAZAPINE [Suspect]
     Indication: DEPRESSION
     Dosage: 15 MG; QD; PO, 30 MG; QD; PO, 45 MG; QD; PO
     Route: 048
     Dates: start: 20100222, end: 20100223
  3. MIRTAZAPINE [Suspect]
     Indication: DEPRESSION
     Dosage: 15 MG; QD; PO, 30 MG; QD; PO, 45 MG; QD; PO
     Route: 048
     Dates: start: 20100224, end: 20100309
  4. PAROXETINE HYDROCHLORIDE [Concomitant]
  5. TETRAMIDE [Concomitant]
  6. PAROXETINE HYDROCHLORIDE [Concomitant]
  7. CLOMIPRAMINE HYDROCHLORIDE [Concomitant]
  8. MIANSERIN HYDROCHLORIDE [Concomitant]
  9. SULPIRIDE [Concomitant]
  10. QUETIAPINE FUMARATE [Concomitant]
  11. ARIPIPRAZOLE [Concomitant]

REACTIONS (13)
  - ARTERIAL HAEMORRHAGE [None]
  - CARDIO-RESPIRATORY ARREST [None]
  - CARTILAGE INJURY [None]
  - DEMENTIA [None]
  - FACE INJURY [None]
  - FACIAL BONES FRACTURE [None]
  - FALL [None]
  - LIVER INJURY [None]
  - PNEUMOTHORAX [None]
  - RIB FRACTURE [None]
  - SUICIDE ATTEMPT [None]
  - THERAPEUTIC PRODUCT INEFFECTIVE [None]
  - TRAUMATIC LUNG INJURY [None]
